APPROVED DRUG PRODUCT: TRAMADOL HYDROCHLORIDE
Active Ingredient: TRAMADOL HYDROCHLORIDE
Strength: 300MG
Dosage Form/Route: TABLET, EXTENDED RELEASE;ORAL
Application: A209404 | Product #003 | TE Code: AB1
Applicant: MACLEODS PHARMACEUTICALS LTD
Approved: Jan 31, 2025 | RLD: No | RS: No | Type: RX